FAERS Safety Report 26150724 (Version 1)
Quarter: 2025Q4

REPORT INFORMATION
  Report Type: Spontaneous
  Country: US (occurrence: None)
  Receive Date: 20251211
  Receipt Date: 20251211
  Transmission Date: 20260118
  Serious: Yes (Other)
  Sender: FDA-CTU
  Company Number: None

PATIENT
  Age: 66 Year
  Sex: Male
  Weight: 58.5 kg

DRUGS (8)
  1. METOPROLOL [Suspect]
     Active Substance: METOPROLOL
     Indication: Cardiac disorder
     Dosage: OTHER QUANTITY : 1 TABLET(S);?FREQUENCY : DAILY;
     Route: 048
  2. OZEMPIC [Concomitant]
     Active Substance: SEMAGLUTIDE
  3. Harding [Concomitant]
  4. DULOXETINE [Concomitant]
     Active Substance: DULOXETINE
  5. LOSARTAN [Concomitant]
     Active Substance: LOSARTAN
  6. roasting [Concomitant]
  7. ASPIRIN [Concomitant]
     Active Substance: ASPIRIN
  8. 1 a day Men^s 50+ Multivitamin [Concomitant]

REACTIONS (2)
  - Dizziness [None]
  - Fall [None]

NARRATIVE: CASE EVENT DATE: 20251209
